FAERS Safety Report 6600920-3 (Version None)
Quarter: 2010Q1

REPORT INFORMATION
  Report Type: 
  Country: None (occurrence: None)
  Receive Date: 20100225
  Receipt Date: 20100211
  Transmission Date: 20100710
  Serious: Yes (Other)
  Sender: FDA-Public Use
  Company Number: BR-BAXTER-2010BH004395

PATIENT
  Sex: Male

DRUGS (4)
  1. PROTHROMPLEX-PARTIAL [Suspect]
     Indication: FACTOR VIII DEFICIENCY
     Route: 065
  2. KRYOBULIN, UNSPECIFIED [Suspect]
     Indication: FACTOR VIII DEFICIENCY
     Route: 065
  3. BEBULIN [Suspect]
     Indication: FACTOR VIII DEFICIENCY
     Route: 065
  4. ANTIHEMOPHILIC FACTOR (HUMAN) [Suspect]
     Indication: FACTOR VIII DEFICIENCY
     Route: 065

REACTIONS (5)
  - HEPATITIS C [None]
  - HTLV-1 TEST POSITIVE [None]
  - HTLV-2 TEST POSITIVE [None]
  - LEUKAEMIA [None]
  - TROPICAL SPASTIC PARESIS [None]
